FAERS Safety Report 21441953 (Version 1)
Quarter: 2022Q4

REPORT INFORMATION
  Report Type: Spontaneous
  Country: US (occurrence: US)
  Receive Date: 20221011
  Receipt Date: 20221011
  Transmission Date: 20230113
  Serious: No
  Sender: FDA-Public Use
  Company Number: US-Sprout Pharmaceuticals, Inc.-2021SP000339

PATIENT
  Age: 43 Year
  Sex: Female

DRUGS (3)
  1. ADDYI [Suspect]
     Active Substance: FLIBANSERIN
     Indication: Product used for unknown indication
     Route: 048
     Dates: start: 20211121
  2. BUPROPION [Concomitant]
     Active Substance: BUPROPION
     Indication: Product used for unknown indication
  3. LOW-OGESTREL [Concomitant]
     Active Substance: ETHINYL ESTRADIOL\NORGESTREL

REACTIONS (1)
  - Adverse event [Unknown]

NARRATIVE: CASE EVENT DATE: 20211121
